FAERS Safety Report 9466187 (Version 1)
Quarter: 2013Q3

REPORT INFORMATION
  Report Type: Report from Study
  Country: US (occurrence: US)
  Receive Date: 20130820
  Receipt Date: 20130820
  Transmission Date: 20140515
  Serious: Yes (Death, Other)
  Sender: FDA-Public Use
  Company Number: US-BAXTER-2013BAX032493

PATIENT
  Age: 63 Year
  Sex: 0

DRUGS (10)
  1. CYCLOPHOSPHAMIDE FOR INJECTION, USP [Suspect]
     Indication: BURKITT^S LYMPHOMA
     Dosage: DAY 1
     Route: 042
  2. CYCLOPHOSPHAMIDE FOR INJECTION, USP [Suspect]
     Indication: BURKITT^S LEUKAEMIA
  3. RITUXIMAB [Suspect]
     Indication: BURKITT^S LYMPHOMA
     Dosage: DAYS 1 AND 8
     Route: 042
  4. RITUXIMAB [Suspect]
     Indication: BURKITT^S LEUKAEMIA
  5. FILGRASTIM [Suspect]
     Indication: BURKITT^S LYMPHOMA
     Dosage: 5 MCG/KG, DAY 3
     Route: 058
  6. FILGRASTIM [Suspect]
     Indication: BURKITT^S LEUKAEMIA
  7. CYTARABINE [Suspect]
     Indication: BURKITT^S LYMPHOMA
     Dosage: DAYS 1, 4, 8 AND 11
     Route: 037
  8. CYTARABINE [Suspect]
     Indication: BURKITT^S LEUKAEMIA
  9. METHOTREXATE [Suspect]
     Indication: BURKITT^S LYMPHOMA
     Dosage: 3 G/M2
     Route: 042
  10. METHOTREXATE [Suspect]
     Indication: BURKITT^S LEUKAEMIA

REACTIONS (3)
  - Neutropenic sepsis [Fatal]
  - Delirium [Unknown]
  - Pneumonia [Unknown]
